FAERS Safety Report 15126972 (Version 1)
Quarter: 2018Q3

REPORT INFORMATION
  Report Type: Spontaneous
  Country: US (occurrence: US)
  Receive Date: 20180710
  Receipt Date: 20180710
  Transmission Date: 20181010
  Serious: Yes (Other)
  Sender: FDA-Public Use
  Company Number: US-SA-2018SA175498

PATIENT
  Age: 61 Year
  Sex: Male

DRUGS (4)
  1. METOPROLOL. [Concomitant]
     Active Substance: METOPROLOL
  2. AMLODIPINE [Concomitant]
     Active Substance: AMLODIPINE BESYLATE
  3. DUPIXENT [Suspect]
     Active Substance: DUPILUMAB
     Indication: DERMATITIS ATOPIC
     Dosage: UNK UNK, QW
  4. PRAVASTATIN. [Concomitant]
     Active Substance: PRAVASTATIN

REACTIONS (13)
  - Erythema of eyelid [Recovered/Resolved]
  - Ectropion [Recovering/Resolving]
  - Vision blurred [Recovering/Resolving]
  - Conjunctival hyperaemia [Recovered/Resolved]
  - Eyelid oedema [Recovering/Resolving]
  - Lacrimation increased [Recovering/Resolving]
  - Scab [Recovering/Resolving]
  - Eye pain [Recovering/Resolving]
  - Visual acuity reduced [Recovering/Resolving]
  - Blepharitis [Recovering/Resolving]
  - Erythema of eyelid [Recovering/Resolving]
  - Conjunctivitis [Recovering/Resolving]
  - Dacryostenosis acquired [Recovering/Resolving]
